FAERS Safety Report 16645486 (Version 2)
Quarter: 2020Q3

REPORT INFORMATION
  Report Type: Report from Study
  Country: US (occurrence: US)
  Receive Date: 20190730
  Receipt Date: 20200924
  Transmission Date: 20201102
  Serious: No
  Sender: FDA-Public Use
  Company Number: PHEH2019US031077

PATIENT
  Age: 39 Year
  Sex: Male

DRUGS (2)
  1. GILENYA [Suspect]
     Active Substance: FINGOLIMOD HYDROCHLORIDE
     Indication: MULTIPLE SCLEROSIS
     Dosage: 0.5 MG, QD
     Route: 048
     Dates: start: 20190531
  2. GILENYA [Suspect]
     Active Substance: FINGOLIMOD HYDROCHLORIDE
     Dosage: 0.5 MG, QD
     Route: 048
     Dates: start: 20190721

REACTIONS (8)
  - Productive cough [Unknown]
  - Abdominal pain [Unknown]
  - Rash [Unknown]
  - Oropharyngeal pain [Recovered/Resolved]
  - Skin discolouration [Unknown]
  - Nasopharyngitis [Recovered/Resolved]
  - Neck pain [Unknown]
  - Pruritus [Unknown]

NARRATIVE: CASE EVENT DATE: 20190721
